FAERS Safety Report 14457957 (Version 1)
Quarter: 2018Q1

REPORT INFORMATION
  Report Type: Spontaneous
  Country: US (occurrence: US)
  Receive Date: 20180130
  Receipt Date: 20180130
  Transmission Date: 20180509
  Serious: Yes (Hospitalization)
  Sender: FDA-Public Use
  Company Number: US-BAYER-2018-012764

PATIENT
  Age: 92 Year
  Sex: Female
  Weight: 59 kg

DRUGS (5)
  1. ALEVE [Suspect]
     Active Substance: NAPROXEN SODIUM
     Indication: PAIN
     Dosage: 2 DF, QD WITH FOOD
     Route: 048
     Dates: end: 20170929
  2. CILOSTAZOL. [Concomitant]
     Active Substance: CILOSTAZOL
     Dosage: UNK
  3. BAYER LOW DOSE [Suspect]
     Active Substance: ASPIRIN
     Indication: PROPHYLAXIS
     Dosage: 1 DF, QD
     Route: 048
  4. SYNTHROID [Concomitant]
     Active Substance: LEVOTHYROXINE SODIUM
     Dosage: UNK
  5. ATROPIN [Concomitant]
     Active Substance: ATROPINE
     Dosage: UNK

REACTIONS (6)
  - Headache [Unknown]
  - Mouth haemorrhage [Unknown]
  - Ulcer [Unknown]
  - Abdominal pain [Unknown]
  - Product use complaint [None]
  - Anal haemorrhage [Unknown]

NARRATIVE: CASE EVENT DATE: 20170929
